FAERS Safety Report 18884483 (Version 1)
Quarter: 2021Q1

REPORT INFORMATION
  Report Type: Spontaneous
  Country: US (occurrence: US)
  Receive Date: 20210209
  Receipt Date: 20210209
  Transmission Date: 20210420
  Serious: Yes (Hospitalization)
  Sender: FDA-Public Use
  Company Number: None

PATIENT
  Age: 41 Year
  Sex: Female
  Weight: 80.3 kg

DRUGS (1)
  1. ATEZOLIZUMAB. [Suspect]
     Active Substance: ATEZOLIZUMAB
     Indication: CERVIX CARCINOMA
     Dates: start: 20210113, end: 20210119

REACTIONS (6)
  - Kidney infection [None]
  - Blood potassium decreased [None]
  - Cystitis [None]
  - Pyrexia [None]
  - Joint swelling [None]
  - Chills [None]

NARRATIVE: CASE EVENT DATE: 20210207
